FAERS Safety Report 7917810-6 (Version None)
Quarter: 2011Q4

REPORT INFORMATION
  Report Type: 
  Country: None (occurrence: None)
  Receive Date: 20111114
  Receipt Date: 20111107
  Transmission Date: 20120403
  Serious: Yes (Death)
  Sender: FDA-Public Use
  Company Number: 2011SP026642

PATIENT
  Age: 65 Year
  Sex: Male

DRUGS (4)
  1. MIRTAZAPINE [Suspect]
     Indication: DEPRESSION
     Dosage: 15 MG;QD;PO
     Route: 048
     Dates: start: 20110217, end: 20110226
  2. LEVOMEPROMAZINE [Concomitant]
  3. SERTRALINE HYDROCHLORIDE [Concomitant]
  4. BROTIZOLAM [Concomitant]

REACTIONS (2)
  - SUICIDAL IDEATION [None]
  - DELIRIUM [None]
